FAERS Safety Report 20967801 (Version 2)
Quarter: 2022Q4

REPORT INFORMATION
  Report Type: Report from Study
  Country: FR (occurrence: FR)
  Receive Date: 20220616
  Receipt Date: 20221129
  Transmission Date: 20230113
  Serious: Yes (Hospitalization)
  Sender: FDA-Public Use
  Company Number: FR-TAKEDA-2022TUS039614

PATIENT
  Age: 58 Year
  Sex: Male

DRUGS (24)
  1. TEDUGLUTIDE [Suspect]
     Active Substance: TEDUGLUTIDE
     Indication: Short-bowel syndrome
     Dosage: 3.16 MILLIGRAM, QD
     Route: 042
     Dates: start: 20181023
  2. TEDUGLUTIDE [Suspect]
     Active Substance: TEDUGLUTIDE
     Indication: Short-bowel syndrome
     Dosage: 3.16 MILLIGRAM, QD
     Route: 042
     Dates: start: 20181023
  3. TEDUGLUTIDE [Suspect]
     Active Substance: TEDUGLUTIDE
     Indication: Short-bowel syndrome
     Dosage: 3.16 MILLIGRAM, QD
     Route: 042
     Dates: start: 20181023
  4. TEDUGLUTIDE [Suspect]
     Active Substance: TEDUGLUTIDE
     Indication: Short-bowel syndrome
     Dosage: 3.16 MILLIGRAM, QD
     Route: 042
     Dates: start: 20181023
  5. DAPTOMYCIN [Concomitant]
     Active Substance: DAPTOMYCIN
     Indication: Staphylococcal infection
     Dosage: 350 MILLIGRAM, QD
     Route: 042
     Dates: start: 20201117, end: 20201201
  6. DAPTOMYCIN [Concomitant]
     Active Substance: DAPTOMYCIN
     Indication: Vascular device infection
     Dosage: 350 MILLIGRAM, QD
     Route: 042
     Dates: start: 202107, end: 202108
  7. DAPTOMYCIN [Concomitant]
     Active Substance: DAPTOMYCIN
     Dosage: 500 MILLIGRAM, QD
     Route: 048
     Dates: start: 20220114, end: 20220210
  8. POLARAMINE [Concomitant]
     Active Substance: DEXCHLORPHENIRAMINE MALEATE
     Indication: Drug hypersensitivity
     Dosage: UNK, SINGLE
     Route: 042
     Dates: start: 20201116, end: 20201116
  9. LOPERAMIDE [Concomitant]
     Active Substance: LOPERAMIDE
     Indication: Illness
     Dosage: 6 MILLIGRAM, TID
     Route: 048
     Dates: start: 201701
  10. HALDOL [Concomitant]
     Active Substance: HALOPERIDOL
     Indication: Mental disorder
     Dosage: 2 MILLIGRAM, BID
     Route: 048
     Dates: start: 201701
  11. OXAZEPAM [Concomitant]
     Active Substance: OXAZEPAM
     Indication: Mental disorder
     Dosage: 20 MILLIGRAM, TID
     Route: 048
     Dates: start: 201701
  12. MIANSERIN HYDROCHLORIDE [Concomitant]
     Active Substance: MIANSERIN HYDROCHLORIDE
     Indication: Mental disorder
     Dosage: 60 MILLIGRAM, QD
     Route: 048
     Dates: start: 201701
  13. CHOLECALCIFEROL [Concomitant]
     Active Substance: CHOLECALCIFEROL
     Indication: Osteoporosis
     Dosage: 200000 INTERNATIONAL UNIT, 1/WEEK
     Route: 048
     Dates: start: 201811
  14. PANTOPRAZOLE [Concomitant]
     Active Substance: PANTOPRAZOLE
     Indication: Product used for unknown indication
     Dosage: 40 MILLIGRAM
     Route: 042
     Dates: start: 201701
  15. .ALPHA.-TOCOPHEROL ACETATE, D- [Concomitant]
     Active Substance: .ALPHA.-TOCOPHEROL ACETATE, D-
     Indication: Vitamin supplementation
     Dosage: 500 MILLIGRAM, QID
     Route: 048
     Dates: start: 201911, end: 202001
  16. INNOHEP [Concomitant]
     Active Substance: TINZAPARIN SODIUM
     Dosage: 0.5 MILLILITER, QD
     Route: 058
     Dates: start: 201809
  17. IMOVANE [Concomitant]
     Active Substance: ZOPICLONE
     Indication: Mental disorder
     Dosage: 3.75 MILLIGRAM, QD
     Route: 048
     Dates: start: 201809
  18. VITAMIN E [Concomitant]
     Active Substance: .ALPHA.-TOCOPHEROL
     Indication: Vitamin supplementation
     Dosage: 500 MILLIGRAM, QD
     Route: 048
     Dates: start: 201911
  19. VITAMIN K [Concomitant]
     Active Substance: PHYTONADIONE
     Indication: Vitamin supplementation
     Dosage: 10 MILLIGRAM, MONTHLY
     Route: 042
     Dates: start: 202005
  20. RIFAXIMIN [Concomitant]
     Active Substance: RIFAXIMIN
     Dosage: 550 MILLIGRAM, BID
     Route: 048
     Dates: start: 202005
  21. CEFTRIAXONE SODIUM [Concomitant]
     Active Substance: CEFTRIAXONE SODIUM
     Indication: Klebsiella infection
     Dosage: 2000 MILLIGRAM, QD
     Route: 030
     Dates: start: 201912, end: 202001
  22. CEFTRIAXONE SODIUM [Concomitant]
     Active Substance: CEFTRIAXONE SODIUM
     Indication: Device related sepsis
  23. GENTAMICIN [Concomitant]
     Active Substance: GENTAMICIN
     Indication: Klebsiella infection
     Dosage: 160 MILLIGRAM
     Route: 042
     Dates: start: 201912, end: 202001
  24. GENTAMICIN [Concomitant]
     Active Substance: GENTAMICIN
     Indication: Device related sepsis

REACTIONS (1)
  - Jugular vein thrombosis [Recovered/Resolved]

NARRATIVE: CASE EVENT DATE: 20210905
